FAERS Safety Report 6892687-9 (Version None)
Quarter: 2010Q3

REPORT INFORMATION
  Report Type: 
  Country: None (occurrence: None)
  Receive Date: 20100731
  Receipt Date: 20080815
  Transmission Date: 20110219
  Serious: Yes (Other)
  Sender: FDA-Public Use
  Company Number: US-PFIZER INC-2008051766

PATIENT
  Sex: Female
  Weight: 108.9 kg

DRUGS (4)
  1. INSPRA [Suspect]
     Indication: HYPERTENSION
     Dosage: DAILY: EVERYDAY
     Dates: start: 20080401
  2. VALSARTAN  AND HYDROCHLOROTHIAZIDE [Suspect]
     Indication: HYPERTENSION
     Dosage: 320/25 MG: 320/25,DAILY: EVERYDAY
  3. COREG [Suspect]
     Indication: HYPERTENSION
     Dosage: BID: EVERYDAY
  4. METFORMIN HCL [Concomitant]

REACTIONS (5)
  - ALOPECIA [None]
  - HAIR GROWTH ABNORMAL [None]
  - HIRSUTISM [None]
  - HYPERTENSION [None]
  - SWELLING FACE [None]
